FAERS Safety Report 14882282 (Version 1)
Quarter: 2018Q2

REPORT INFORMATION
  Report Type: Spontaneous
  Country: CN (occurrence: CN)
  Receive Date: 20180511
  Receipt Date: 20180511
  Transmission Date: 20180711
  Serious: Yes (Other)
  Sender: FDA-Public Use
  Company Number: CN-BAYER-2018-084060

PATIENT
  Age: 75 Year
  Sex: Male

DRUGS (1)
  1. ACETYLSALICYLIC ACID({=100 MG) [Suspect]
     Active Substance: ASPIRIN
     Dosage: 100 MG, QD
     Route: 048
     Dates: start: 20161205, end: 20161211

REACTIONS (7)
  - Cerebral infarction [None]
  - Hypertension [None]
  - Gout [Recovering/Resolving]
  - Pneumonia [None]
  - Cholecystitis acute [None]
  - Pyrexia [Recovered/Resolved]
  - Hyperglycaemia [None]

NARRATIVE: CASE EVENT DATE: 20161206
